FAERS Safety Report 11320942 (Version 2)
Quarter: 2015Q4

REPORT INFORMATION
  Report Type: Spontaneous
  Country: US (occurrence: US)
  Receive Date: 20150729
  Receipt Date: 20151106
  Transmission Date: 20160304
  Serious: No
  Sender: FDA-Public Use
  Company Number: US-PFIZER INC-2015249972

PATIENT
  Age: 74 Year
  Sex: Female
  Weight: 78 kg

DRUGS (3)
  1. LYRICA [Suspect]
     Active Substance: PREGABALIN
     Dosage: 75 MG, 1X/DAY (AT NIGHT WHEN SHE GOES TO BED)
  2. LYRICA [Suspect]
     Active Substance: PREGABALIN
     Dosage: 75 MG, 1X/DAY (RECEIVED 270 CAPSULES OF LYRICA 75MG WHICH IS THREE/DAY HOWEVER ONLY TAKES ONE A DAY)
  3. ATENOLOL CHLORTALIDONE [Concomitant]
     Indication: BLOOD PRESSURE ABNORMAL
     Dosage: 50/25, 1X/DAY

REACTIONS (1)
  - Arthritis [Unknown]
